FAERS Safety Report 19717749 (Version 2)
Quarter: 2021Q3

REPORT INFORMATION
  Report Type: Report from Study
  Country: US (occurrence: US)
  Receive Date: 20210819
  Receipt Date: 20210823
  Transmission Date: 20211014
  Serious: No
  Sender: FDA-Public Use
  Company Number: US-AMGEN-USASL2020002129

PATIENT
  Age: 48 Year
  Sex: Female

DRUGS (2)
  1. ENBREL [Suspect]
     Active Substance: ETANERCEPT
     Dosage: 50 MILLIGRAM, 2 TIMES/WK
     Route: 065
  2. ENBREL [Suspect]
     Active Substance: ETANERCEPT
     Indication: PSORIASIS
     Dosage: 50 MILLIGRAM, 2 TIMES/WK
     Route: 065

REACTIONS (8)
  - Injection site pain [Unknown]
  - Accidental exposure to product [Unknown]
  - Injection site haemorrhage [Unknown]
  - Device issue [Unknown]
  - Wrong technique in product usage process [Unknown]
  - Device use error [Unknown]
  - Incorrect dose administered by device [Unknown]
  - Device difficult to use [Unknown]

NARRATIVE: CASE EVENT DATE: 201912
